FAERS Safety Report 8220153-7 (Version None)
Quarter: 2012Q1

REPORT INFORMATION
  Report Type: 
  Country: None (occurrence: None)
  Receive Date: 20120320
  Receipt Date: 20120312
  Transmission Date: 20120608
  Serious: No
  Sender: FDA-Public Use
  Company Number: US-BAYER-2012-024577

PATIENT
  Sex: Female

DRUGS (1)
  1. YAZ [Suspect]

REACTIONS (1)
  - WITHDRAWAL BLEED [None]
